FAERS Safety Report 7438324-6 (Version None)
Quarter: 2011Q2

REPORT INFORMATION
  Report Type: 
  Country: None (occurrence: None)
  Receive Date: 20110426
  Receipt Date: 20110415
  Transmission Date: 20111010
  Serious: Yes (Hospitalization)
  Sender: FDA-Public Use
  Company Number: US-SHIRE-SPV1-2011-00646

PATIENT
  Sex: Female
  Weight: 145.13 kg

DRUGS (16)
  1. PROZAC [Concomitant]
     Indication: PRODUCT USED FOR UNKNOWN INDICATION
     Dosage: 20 MG, 3X/DAY:TID
     Route: 048
  2. LISINOPRIL AND HYDROCHLOROTHIAZIDE [Concomitant]
     Indication: DIURETIC THERAPY
     Dosage: UNK UNK, 1X/DAY:QD
     Route: 048
  3. VENTOLIN [Concomitant]
     Indication: ASTHMA
     Dosage: UNK, 4X/DAY:QID
     Route: 055
  4. MOTRIN [Concomitant]
     Indication: PRODUCT USED FOR UNKNOWN INDICATION
  5. NEURONTIN [Concomitant]
     Indication: PRODUCT USED FOR UNKNOWN INDICATION
     Dosage: 500 MG, 3X/DAY:TID
     Route: 048
  6. VITAMIN A [Concomitant]
     Indication: PRODUCT USED FOR UNKNOWN INDICATION
     Dosage: 5000 IU, UNKNOWN
     Route: 048
  7. COMBIVENT [Concomitant]
     Indication: ASTHMA
     Dosage: UNK, 2X/DAY:BID
     Route: 055
  8. FISH OIL [Concomitant]
     Indication: PRODUCT USED FOR UNKNOWN INDICATION
     Dosage: UNK, 4X/DAY:QID
     Route: 048
  9. LOPID [Concomitant]
     Indication: PRODUCT USED FOR UNKNOWN INDICATION
     Dosage: 600 MG, 2X/DAY:BID
     Route: 048
  10. DEXILANT [Concomitant]
     Indication: DYSPEPSIA
     Dosage: 60 MG, 1X/DAY:QD
     Route: 048
  11. HYDROCODONE [Concomitant]
     Indication: PRODUCT USED FOR UNKNOWN INDICATION
     Dosage: 500 MG, 4X/DAY:QID
     Route: 048
  12. ATACAND [Concomitant]
     Indication: PRODUCT USED FOR UNKNOWN INDICATION
     Dosage: UNK, UNKNOWN
     Route: 048
  13. LEVOTHYROXINE SODIUM [Concomitant]
     Indication: PRODUCT USED FOR UNKNOWN INDICATION
     Dosage: 0.25 MG, 1X/DAY:QD
     Route: 048
  14. ELETRIPTAN HYDROBROMIDE [Concomitant]
     Indication: MIGRAINE
     Dosage: 20 MG, AS REQ'D
     Route: 048
  15. VYVANSE [Suspect]
     Indication: ATTENTION DEFICIT/HYPERACTIVITY DISORDER
     Dosage: 60 MG, 1X/DAY:QD
     Route: 048
     Dates: end: 20110414
  16. METFORMIN [Concomitant]
     Indication: PRODUCT USED FOR UNKNOWN INDICATION
     Dosage: 500 MG, 2X/DAY:BID
     Route: 048

REACTIONS (6)
  - ANXIETY [None]
  - RENAL IMPAIRMENT [None]
  - ANAEMIA [None]
  - URINARY TRACT INFECTION [None]
  - DEHYDRATION [None]
  - NAUSEA [None]
